FAERS Safety Report 25331735 (Version 2)
Quarter: 2025Q2

REPORT INFORMATION
  Report Type: Report from Study
  Country: CN (occurrence: CN)
  Receive Date: 20250519
  Receipt Date: 20250526
  Transmission Date: 20250717
  Serious: Yes (Hospitalization)
  Sender: ROCHE
  Company Number: CN-ROCHE-10000279265

PATIENT
  Age: 73 Year
  Sex: Male
  Weight: 61 kg

DRUGS (15)
  1. POLATUZUMAB VEDOTIN [Suspect]
     Active Substance: POLATUZUMAB VEDOTIN
     Indication: Diffuse large B-cell lymphoma
     Route: 042
     Dates: start: 20240906, end: 20240906
  2. SINTILIMAB [Suspect]
     Active Substance: SINTILIMAB
     Indication: Diffuse large B-cell lymphoma
     Route: 042
     Dates: start: 20250214, end: 20250214
  3. CYCLOPHOSPHAMIDE [Suspect]
     Active Substance: CYCLOPHOSPHAMIDE
     Indication: Diffuse large B-cell lymphoma
     Route: 042
     Dates: start: 20240909, end: 20240909
  4. DOXORUBICIN [Suspect]
     Active Substance: DOXORUBICIN
     Indication: Diffuse large B-cell lymphoma
     Route: 042
     Dates: start: 20240909, end: 20240909
  5. RITUXIMAB [Suspect]
     Active Substance: RITUXIMAB
     Indication: Diffuse large B-cell lymphoma
     Route: 042
     Dates: start: 20240906, end: 20240906
  6. RITUXIMAB [Suspect]
     Active Substance: RITUXIMAB
     Route: 042
     Dates: start: 20250213, end: 20250213
  7. PREDNISONE [Suspect]
     Active Substance: PREDNISONE
     Indication: Diffuse large B-cell lymphoma
     Route: 048
     Dates: start: 20240909, end: 20240913
  8. Entecavir Tablets [Concomitant]
     Route: 048
     Dates: start: 20241209
  9. Entecavir Tablets [Concomitant]
     Dosage: DRUG DOSE FIRST ADMINISTERED IS 1 TABLET
     Route: 048
     Dates: start: 20250103
  10. PROMETHAZINE [Concomitant]
     Active Substance: PROMETHAZINE HYDROCHLORIDE
     Route: 030
     Dates: start: 20250213, end: 20250213
  11. DEXAMETHASONE SODIUM PHOSPHATE [Concomitant]
     Active Substance: DEXAMETHASONE SODIUM PHOSPHATE
     Route: 042
     Dates: start: 20250213, end: 20250213
  12. Magnesium Isoglycyrrhizinate injection [Concomitant]
     Route: 042
     Dates: start: 20250213, end: 20250213
  13. Magnesium Isoglycyrrhizinate injection [Concomitant]
     Route: 042
     Dates: start: 20250214, end: 20250214
  14. Roxatidine Acetate Hydrochloride injection [Concomitant]
     Route: 042
     Dates: start: 20250213, end: 20250213
  15. Roxatidine Acetate Hydrochloride injection [Concomitant]
     Route: 042
     Dates: start: 20250214, end: 20250214

REACTIONS (2)
  - Myocardial injury [Not Recovered/Not Resolved]
  - Liver injury [Not Recovered/Not Resolved]

NARRATIVE: CASE EVENT DATE: 20250303
